FAERS Safety Report 9030793 (Version 2)
Quarter: 2013Q3

REPORT INFORMATION
  Report Type: Spontaneous
  Country: US (occurrence: US)
  Receive Date: 20130123
  Receipt Date: 20130729
  Transmission Date: 20140515
  Serious: Yes (Hospitalization, Disabling)
  Sender: FDA-Public Use
  Company Number: US-ROCHE-1180073

PATIENT
  Age: 51 Year
  Sex: Female
  Weight: 79.45 kg

DRUGS (8)
  1. VALIUM [Suspect]
     Indication: MUSCLE TWITCHING
     Route: 065
  2. CELEBREX [Suspect]
     Indication: BACK PAIN
     Route: 065
  3. CELEBREX [Suspect]
     Indication: ARNOLD-CHIARI MALFORMATION
  4. ZITHROMAX [Suspect]
     Indication: RESPIRATORY DISORDER
     Route: 065
  5. HYDROMORPHONE [Suspect]
     Indication: BACK PAIN
     Route: 065
  6. ROBAXIN [Suspect]
     Indication: BACK PAIN
     Route: 065
  7. DEXILANT [Concomitant]
  8. SYNVISC [Concomitant]

REACTIONS (5)
  - Back pain [Unknown]
  - Intraductal proliferative breast lesion [Recovering/Resolving]
  - Drug ineffective [Unknown]
  - Temporomandibular joint syndrome [Unknown]
  - Fibromyalgia [Unknown]
